FAERS Safety Report 12342042 (Version 1)
Quarter: 2016Q2

REPORT INFORMATION
  Report Type: Spontaneous
  Country: FR (occurrence: FR)
  Receive Date: 20160506
  Receipt Date: 20160506
  Transmission Date: 20160815
  Serious: Yes (Death)
  Sender: FDA-Public Use
  Company Number: FR-ROCHE-1750830

PATIENT
  Age: 64 Year
  Sex: Male

DRUGS (17)
  1. TAFINLAR [Suspect]
     Active Substance: DABRAFENIB MESYLATE
     Indication: METASTATIC MALIGNANT MELANOMA
     Route: 048
     Dates: start: 201512, end: 20160405
  2. NOVORAPID [Concomitant]
     Active Substance: INSULIN ASPART
  3. COTELLIC [Suspect]
     Active Substance: COBIMETINIB
     Indication: METASTATIC MALIGNANT MELANOMA
     Dosage: COATED TABLET
     Route: 048
     Dates: start: 201601, end: 20160316
  4. BISOPROLOL [Concomitant]
     Active Substance: BISOPROLOL
  5. VALSARTAN. [Concomitant]
     Active Substance: VALSARTAN
  6. LYRICA [Concomitant]
     Active Substance: PREGABALIN
  7. INNOHEP [Concomitant]
     Active Substance: TINZAPARIN SODIUM
  8. DIFFU K [Concomitant]
     Active Substance: POTASSIUM CHLORIDE
  9. KARDEGIC [Concomitant]
     Active Substance: ASPIRIN LYSINE
     Route: 065
  10. LASILIX [Concomitant]
     Active Substance: FUROSEMIDE
  11. AMLODIPINE [Concomitant]
     Active Substance: AMLODIPINE BESYLATE
  12. ATORVASTATINE [Concomitant]
     Active Substance: ATORVASTATIN
  13. HYDROCORTISONE. [Concomitant]
     Active Substance: HYDROCORTISONE
  14. DUROGESIC [Concomitant]
     Active Substance: FENTANYL
  15. LEVEMIR [Concomitant]
     Active Substance: INSULIN DETEMIR
  16. OXYNORM [Concomitant]
     Active Substance: OXYCODONE HYDROCHLORIDE
  17. LEVOTHYROX [Concomitant]
     Active Substance: LEVOTHYROXINE

REACTIONS (2)
  - Acute respiratory failure [Fatal]
  - Cardiac failure [Fatal]

NARRATIVE: CASE EVENT DATE: 20160331
